FAERS Safety Report 5690035-3 (Version None)
Quarter: 2008Q1

REPORT INFORMATION
  Report Type: 
  Country: None (occurrence: None)
  Receive Date: 20080331
  Receipt Date: 20080331
  Transmission Date: 20080703
  Serious: Yes (Other)
  Sender: FDA-Public Use
  Company Number: None

PATIENT
  Age: 7 Year
  Sex: Male

DRUGS (2)
  1. SINGULAIR [Suspect]
     Indication: ASTHMA
     Dosage: ONE TABLET DAILY PO
     Route: 048
     Dates: start: 20030401, end: 20080328
  2. SINGULAIR [Suspect]
     Indication: HYPERSENSITIVITY
     Dosage: ONE TABLET DAILY PO
     Route: 048
     Dates: start: 20030401, end: 20080328

REACTIONS (9)
  - ABNORMAL BEHAVIOUR [None]
  - AGGRESSION [None]
  - ANGER [None]
  - FATIGUE [None]
  - FEELING ABNORMAL [None]
  - MOOD ALTERED [None]
  - NIGHTMARE [None]
  - PAIN IN EXTREMITY [None]
  - POOR QUALITY SLEEP [None]
